FAERS Safety Report 25417892 (Version 1)
Quarter: 2025Q2

REPORT INFORMATION
  Report Type: Spontaneous
  Country: US (occurrence: US)
  Receive Date: 20250610
  Receipt Date: 20250610
  Transmission Date: 20250716
  Serious: Yes (Hospitalization)
  Sender: JOHNSON AND JOHNSON
  Company Number: US-JNJFOC-20250607127

PATIENT
  Age: 62 Year
  Sex: Male

DRUGS (1)
  1. CARVYKTI [Suspect]
     Active Substance: CILTACABTAGENE AUTOLEUCEL
     Indication: Plasma cell myeloma
     Dates: start: 20240731, end: 20240731

REACTIONS (2)
  - Cytokine release syndrome [Recovered/Resolved]
  - Parkinsonism [Recovering/Resolving]

NARRATIVE: CASE EVENT DATE: 20240830
